FAERS Safety Report 7654641-9 (Version None)
Quarter: 2011Q3

REPORT INFORMATION
  Report Type: 
  Country: None (occurrence: None)
  Receive Date: 20110803
  Receipt Date: 20110802
  Transmission Date: 20111222
  Serious: Yes (Hospitalization)
  Sender: FDA-Public Use
  Company Number: US-BRISTOL-MYERS SQUIBB COMPANY-13869730

PATIENT
  Age: 67 Year
  Sex: Male
  Weight: 98 kg

DRUGS (2)
  1. CETUXIMAB [Suspect]
     Indication: HEAD AND NECK CANCER
     Dosage: 400MG/M2 IV X 1WK PRIOR TO CHEMO/RT THEN 250MG/M2 IV WKLY X 7 DURING RADIATION
     Dates: end: 20070423
  2. CISPLATIN [Suspect]
     Indication: HEAD AND NECK CANCER
     Dosage: 100MG/M2 IV  DAY 1 + 22
     Dates: start: 20070402, end: 20070402

REACTIONS (4)
  - HYPERKALAEMIA [None]
  - RENAL FAILURE ACUTE [None]
  - BLOOD CREATININE INCREASED [None]
  - HYPOGLYCAEMIA [None]
